FAERS Safety Report 4986054-2 (Version None)
Quarter: 2006Q2

REPORT INFORMATION
  Report Type: 
  Country: None (occurrence: None)
  Receive Date: 20060428
  Receipt Date: 20060405
  Transmission Date: 20061013
  Serious: Yes (Hospitalization)
  Sender: FDA-Public Use
  Company Number: NO-ABBOTT-06P-122-0330050-01

PATIENT
  Sex: Male
  Weight: 67 kg

DRUGS (11)
  1. HUMIRA [Suspect]
     Indication: PSORIATIC ARTHROPATHY
     Route: 058
     Dates: start: 20060109, end: 20060321
  2. METHOTREXATE [Concomitant]
     Indication: PSORIATIC ARTHROPATHY
     Route: 048
     Dates: start: 20050711
  3. FOLSYE [Concomitant]
     Indication: VITAMIN SUPPLEMENTATION
     Route: 048
     Dates: start: 20050711
  4. ALAYL [Concomitant]
     Indication: ANTIPLATELET THERAPY
     Route: 048
     Dates: start: 19930101
  5. METOPROLOL SUCCINATE [Concomitant]
     Indication: THROMBOSIS PROPHYLAXIS
     Route: 048
     Dates: start: 19930101
  6. ACECLOFENAC [Concomitant]
     Indication: ARTHRITIS
     Route: 048
     Dates: start: 20050209
  7. ZOPICLONE [Concomitant]
     Indication: INSOMNIA
     Route: 048
     Dates: start: 20050711
  8. ESOMEPRAZOLE [Concomitant]
     Indication: DYSPEPSIA
     Route: 048
  9. TETRACYCLINE [Concomitant]
     Indication: ROSACEA
     Route: 048
     Dates: start: 19750101
  10. SIMVASTATIN [Concomitant]
     Indication: HYPERCHOLESTEROLAEMIA
     Route: 048
  11. ISONIAZID [Concomitant]
     Indication: ANTIBIOTIC PROPHYLAXIS
     Route: 048
     Dates: start: 20051212

REACTIONS (1)
  - HAEMOPTYSIS [None]
